FAERS Safety Report 16985147 (Version 1)
Quarter: 2019Q4

REPORT INFORMATION
  Report Type: Spontaneous
  Country: FR (occurrence: FR)
  Receive Date: 20191101
  Receipt Date: 20191101
  Transmission Date: 20200122
  Serious: Yes (Hospitalization)
  Sender: FDA-Public Use
  Company Number: FR-SAMSUNG BIOEPIS-SB-2019-31601

PATIENT
  Age: 54 Year
  Sex: Female
  Weight: 88 kg

DRUGS (4)
  1. PREDNISONE. [Concomitant]
     Active Substance: PREDNISONE
     Indication: ACUTE GRAFT VERSUS HOST DISEASE
     Route: 048
     Dates: start: 20180517, end: 20180517
  2. JAKAVI [Suspect]
     Active Substance: RUXOLITINIB
     Indication: ACUTE GRAFT VERSUS HOST DISEASE
     Route: 048
     Dates: start: 20180518, end: 20180520
  3. ACICLOVIR [Concomitant]
     Active Substance: ACYCLOVIR
     Indication: INFECTION PROPHYLAXIS
     Dosage: UNKNOWN
     Route: 042
     Dates: start: 20180520
  4. INFLIXIMAB [Suspect]
     Active Substance: INFLIXIMAB
     Indication: ACUTE GRAFT VERSUS HOST DISEASE
     Dosage: UNKNOWN
     Route: 042
     Dates: start: 20171017

REACTIONS (5)
  - Pancreatitis [Unknown]
  - Intestinal obstruction [Recovered/Resolved]
  - Device related infection [Recovered/Resolved]
  - Confusional state [Recovered/Resolved]
  - Respiratory distress [Recovered/Resolved]

NARRATIVE: CASE EVENT DATE: 20180525
